FAERS Safety Report 8476243-7 (Version None)
Quarter: 2012Q2

REPORT INFORMATION
  Report Type: 
  Country: None (occurrence: None)
  Receive Date: 20120628
  Receipt Date: 20120618
  Transmission Date: 20120825
  Serious: Yes (Hospitalization)
  Sender: FDA-Public Use
  Company Number: JP-EISAI INC-E3810-05626-SPO-JP

PATIENT
  Age: 51 Year
  Sex: Female

DRUGS (4)
  1. RABEPRAZOLE SODIUM [Suspect]
     Indication: HELICOBACTER INFECTION
     Route: 048
     Dates: start: 20101130, end: 20101205
  2. AMOXICILLIN [Suspect]
     Indication: HELICOBACTER INFECTION
     Route: 048
     Dates: start: 20101130, end: 20101205
  3. CEFAZOLIN SODIUM [Concomitant]
     Indication: PROPHYLAXIS AGAINST DIARRHOEA
     Route: 048
     Dates: start: 20101130, end: 20101205
  4. FLAGYL [Suspect]
     Indication: HELICOBACTER INFECTION
     Route: 048
     Dates: start: 20101130, end: 20101205

REACTIONS (1)
  - ENTEROCOLITIS HAEMORRHAGIC [None]
